FAERS Safety Report 8811766 (Version 1)
Quarter: 2012Q4

REPORT INFORMATION
  Report Type: 
  Country: US (occurrence: US)
  Receive Date: 20120927
  Receipt Date: 20120927
  Transmission Date: 20130627
  Serious: Yes (Other)
  Sender: FDA-Public Use
  Company Number: US-AMGEN-USASP2012060543

PATIENT
  Age: 72 Year
  Sex: Female

DRUGS (3)
  1. PROLIA [Suspect]
     Indication: OSTEOPOROSIS POSTMENOPAUSAL
     Dosage: UNK
     Dates: start: 201107
  2. CALCIUM [Concomitant]
     Dosage: UNK
  3. VITAMIN D /00107901/ [Concomitant]

REACTIONS (2)
  - Upper limb fracture [Unknown]
  - Fall [Recovered/Resolved]
